FAERS Safety Report 9240012 (Version 1)
Quarter: 2013Q2

REPORT INFORMATION
  Report Type: Spontaneous
  Country: HK (occurrence: HK)
  Receive Date: 20130418
  Receipt Date: 20130418
  Transmission Date: 20140414
  Serious: Yes (Other)
  Sender: FDA-Public Use
  Company Number: HK-B.I. PHARMACEUTICALS,INC./RIDGEFIELD-2013-BI-10432GD

PATIENT
  Sex: Male

DRUGS (4)
  1. VIRAMUNE [Suspect]
     Indication: ACQUIRED IMMUNODEFICIENCY SYNDROME
     Dates: start: 2002
  2. DIDANOSINE [Suspect]
     Indication: ACQUIRED IMMUNODEFICIENCY SYNDROME
     Dates: start: 2002, end: 2006
  3. LAMIVUDINE [Suspect]
     Indication: ACQUIRED IMMUNODEFICIENCY SYNDROME
     Dates: start: 1999
  4. ABACAVIR [Suspect]
     Indication: ACQUIRED IMMUNODEFICIENCY SYNDROME
     Dates: start: 2006

REACTIONS (11)
  - Oesophageal varices haemorrhage [Unknown]
  - Haematemesis [Unknown]
  - Varices oesophageal [Unknown]
  - Portal hypertension [Unknown]
  - Liver disorder [Unknown]
  - Liver disorder [Unknown]
  - Drug-induced liver injury [Unknown]
  - Pancreatitis acute [Unknown]
  - Hypersplenism [Unknown]
  - Splenomegaly [Unknown]
  - Hepatomegaly [Unknown]
